FAERS Safety Report 17053137 (Version 1)
Quarter: 2019Q4

REPORT INFORMATION
  Report Type: Spontaneous
  Country: US (occurrence: US)
  Receive Date: 20191120
  Receipt Date: 20191120
  Transmission Date: 20200122
  Serious: No
  Sender: FDA-Public Use
  Company Number: US-PFIZER INC-2019496982

PATIENT

DRUGS (2)
  1. MEROPENEM. [Interacting]
     Active Substance: MEROPENEM
     Dosage: UNK
  2. CIPROFLOXACIN. [Suspect]
     Active Substance: CIPROFLOXACIN
     Dosage: UNK

REACTIONS (4)
  - Drug chemical incompatibility [Unknown]
  - Wrong technique in product usage process [Unknown]
  - Product deposit [Unknown]
  - Product complaint [Unknown]
